FAERS Safety Report 13136936 (Version 1)
Quarter: 2017Q1

REPORT INFORMATION
  Report Type: Spontaneous
  Country: HR (occurrence: HR)
  Receive Date: 20170123
  Receipt Date: 20170123
  Transmission Date: 20170428
  Serious: Yes (Hospitalization, Other)
  Sender: FDA-Public Use
  Company Number: HR-CIPLA LTD.-2017HR00963

PATIENT

DRUGS (1)
  1. RISPERIDONE. [Suspect]
     Active Substance: RISPERIDONE
     Dosage: 4 G, SINGLE
     Route: 048
     Dates: start: 201610, end: 201610

REACTIONS (6)
  - Suicide attempt [Unknown]
  - Oxygen saturation decreased [Recovered/Resolved]
  - Leukocytosis [Unknown]
  - Body temperature decreased [Recovered/Resolved]
  - Intentional overdose [Unknown]
  - Hypotension [Recovering/Resolving]

NARRATIVE: CASE EVENT DATE: 201610
